FAERS Safety Report 19823920 (Version 3)
Quarter: 2021Q4

REPORT INFORMATION
  Report Type: Spontaneous
  Country: US (occurrence: US)
  Receive Date: 20210914
  Receipt Date: 20211013
  Transmission Date: 20220303
  Serious: No
  Sender: FDA-Public Use
  Company Number: US-BEH-2021135809

PATIENT
  Age: 45 Year
  Sex: Male

DRUGS (2)
  1. HIZENTRA [Suspect]
     Active Substance: HUMAN IMMUNOGLOBULIN G
     Indication: Immunodeficiency common variable
     Dosage: 15 GRAM, QOW
     Route: 058
     Dates: start: 202102
  2. HIZENTRA [Suspect]
     Active Substance: HUMAN IMMUNOGLOBULIN G
     Indication: Immunodeficiency common variable
     Dosage: 4 GRAM
     Route: 042
     Dates: start: 20210901

REACTIONS (8)
  - Infusion site pain [Unknown]
  - Infusion site nodule [Unknown]
  - Peripheral swelling [Unknown]
  - No adverse event [Unknown]
  - Incorrect route of product administration [Unknown]
  - No adverse event [Unknown]
  - Insurance issue [Unknown]
  - Skin mass [Unknown]

NARRATIVE: CASE EVENT DATE: 20210801
